FAERS Safety Report 11415133 (Version 3)
Quarter: 2015Q4

REPORT INFORMATION
  Report Type: Report from Study
  Country: IT (occurrence: IT)
  Receive Date: 20150825
  Receipt Date: 20151208
  Transmission Date: 20160304
  Serious: Yes (Hospitalization, Other)
  Sender: FDA-Public Use
  Company Number: IT-ROCHE-1621502

PATIENT
  Age: 79 Year
  Sex: Female

DRUGS (24)
  1. DELTACORTENE [Concomitant]
     Active Substance: PREDNISONE
     Route: 065
     Dates: start: 201410
  2. LEXOTAN [Concomitant]
     Active Substance: BROMAZEPAM
     Indication: INSOMNIA
     Route: 065
     Dates: start: 201410
  3. AUGMENTIN [Concomitant]
     Active Substance: AMOXICILLIN\CLAVULANATE POTASSIUM
     Route: 065
     Dates: start: 20150104
  4. ALPRAZOLAM. [Concomitant]
     Active Substance: ALPRAZOLAM
     Route: 065
     Dates: start: 20150131, end: 20150506
  5. ESBRIET [Suspect]
     Active Substance: PIRFENIDONE
     Route: 065
  6. TORADOL [Concomitant]
     Active Substance: KETOROLAC TROMETHAMINE
     Indication: FLANK PAIN
     Dosage: 1 VIAL
     Route: 065
     Dates: start: 20141227
  7. SUPRADYN [Concomitant]
     Active Substance: ASCORBIC ACID\MINERALS\VITAMINS
     Dosage: 1 TABLET A DAY
     Route: 065
  8. ESBRIET [Suspect]
     Active Substance: PIRFENIDONE
     Indication: IDIOPATHIC PULMONARY FIBROSIS
     Route: 065
  9. DIFOSFONAL [Concomitant]
     Active Substance: CLODRONATE DISODIUM
     Route: 065
     Dates: start: 201410
  10. OXYGEN. [Concomitant]
     Active Substance: OXYGEN
     Route: 065
     Dates: start: 20141103
  11. SALINE ORAL OTC [Concomitant]
     Active Substance: SODIUM CHLORIDE
     Indication: FLANK PAIN
     Route: 065
     Dates: start: 20141227
  12. TACHIPIRINA [Concomitant]
     Active Substance: ACETAMINOPHEN
     Indication: FLANK PAIN
     Dosage: 500 MG 3 DOSAGE FORMS DAILY
     Route: 065
  13. VENLAFAXIN [Concomitant]
     Active Substance: VENLAFAXINE HYDROCHLORIDE
     Dosage: 37.5 MG AT A DOSE OF 1 TABLET
     Route: 065
     Dates: start: 201503, end: 20150403
  14. GAVISCON (ALGINIC ACID) [Concomitant]
     Route: 065
     Dates: start: 201410
  15. PANTOPRAZOLE [Concomitant]
     Active Substance: PANTOPRAZOLE SODIUM
     Route: 065
     Dates: start: 201410
  16. TAVOR [Concomitant]
     Active Substance: LORAZEPAM
  17. LEVOTUSS [Concomitant]
     Active Substance: LEVODROPROPIZINE
  18. CARDIRENE [Concomitant]
     Active Substance: ASPIRIN DL-LYSINE
     Dosage: 75 MG AT A DOSE OF 1 SACHET PER DAY
     Route: 065
     Dates: start: 20150131
  19. LORAZEPAM. [Concomitant]
     Active Substance: LORAZEPAM
     Route: 065
     Dates: start: 20150403
  20. ESBRIET [Suspect]
     Active Substance: PIRFENIDONE
     Route: 065
  21. PERFALGAN [Concomitant]
     Active Substance: ACETAMINOPHEN
     Indication: FLANK PAIN
     Dosage: 1 VIAL
     Route: 065
  22. ORUDIS [Concomitant]
     Active Substance: KETOPROFEN
     Indication: FLANK PAIN
     Route: 065
     Dates: start: 20141227
  23. ESBRIET [Suspect]
     Active Substance: PIRFENIDONE
     Route: 065
  24. DIBASE [Concomitant]
     Active Substance: CHOLECALCIFEROL
     Route: 065
     Dates: start: 201410

REACTIONS (27)
  - Flank pain [Unknown]
  - Anxiety [Unknown]
  - Gastric pH decreased [Unknown]
  - Oxygen saturation decreased [Unknown]
  - Stupor [Unknown]
  - Sleep disorder [Unknown]
  - Cerebrovascular accident [Unknown]
  - Gastrointestinal disorder [Unknown]
  - Cough [Unknown]
  - Weight decreased [Unknown]
  - Headache [Unknown]
  - Dizziness [Unknown]
  - Chest pain [Recovered/Resolved]
  - Hepatic enzyme increased [Unknown]
  - Malaise [Unknown]
  - Vision blurred [Unknown]
  - Panic attack [Unknown]
  - Rib fracture [Unknown]
  - Drug dose omission [Unknown]
  - Respiratory disorder [Unknown]
  - Dyspnoea [Unknown]
  - Decreased appetite [Unknown]
  - Stress [Unknown]
  - Asthenia [Recovered/Resolved]
  - Bone disorder [Unknown]
  - Tremor [Unknown]
  - Dyspepsia [Not Recovered/Not Resolved]
